FAERS Safety Report 7608596-3 (Version None)
Quarter: 2011Q3

REPORT INFORMATION
  Report Type: 
  Country: None (occurrence: None)
  Receive Date: 20110713
  Receipt Date: 20110713
  Transmission Date: 20111222
  Serious: No
  Sender: FDA-Public Use
  Company Number: None

PATIENT
  Sex: Male
  Weight: 76.8 kg

DRUGS (1)
  1. ALEMTUZUMAB (CAMPETH) [Suspect]
     Dosage: 30 MG

REACTIONS (7)
  - HAEMATOCRIT DECREASED [None]
  - HAEMOGLOBIN DECREASED [None]
  - WHITE BLOOD CELL COUNT DECREASED [None]
  - PYREXIA [None]
  - SINUS CONGESTION [None]
  - TUMOUR ASSOCIATED FEVER [None]
  - NEUTROPHIL COUNT DECREASED [None]
